FAERS Safety Report 17793997 (Version 2)
Quarter: 2020Q4

REPORT INFORMATION
  Report Type: Report from Study
  Country: IN (occurrence: IN)
  Receive Date: 20200515
  Receipt Date: 20201204
  Transmission Date: 20210113
  Serious: Yes (Hospitalization, Other)
  Sender: FDA-Public Use
  Company Number: NVSC2020IN133094

PATIENT
  Sex: Female

DRUGS (1)
  1. SPEXIB [Suspect]
     Active Substance: CERITINIB
     Indication: NON-SMALL CELL LUNG CANCER
     Dosage: 450 MG, QD
     Route: 048
     Dates: start: 20200504, end: 20201125

REACTIONS (4)
  - Non-small cell lung cancer [Not Recovered/Not Resolved]
  - Speech disorder [Recovering/Resolving]
  - Movement disorder [Recovering/Resolving]
  - Malignant neoplasm progression [Not Recovered/Not Resolved]
